FAERS Safety Report 9789805 (Version 2)
Quarter: 2014Q1

REPORT INFORMATION
  Report Type: Spontaneous
  Country: US (occurrence: US)
  Receive Date: 20131231
  Receipt Date: 20140110
  Transmission Date: 20141002
  Serious: Yes (Other)
  Sender: FDA-Public Use
  Company Number: US-ROCHE-1327398

PATIENT
  Age: 77 Year
  Sex: Male

DRUGS (1)
  1. LUCENTIS [Suspect]
     Indication: AGE-RELATED MACULAR DEGENERATION
     Dosage: 0.5/0.05MG/ML
     Route: 050

REACTIONS (4)
  - Intraocular pressure increased [Recovered/Resolved]
  - Hyphaema [Unknown]
  - Injection site haemorrhage [Unknown]
  - Vision blurred [Unknown]
